FAERS Safety Report 15760322 (Version 2)
Quarter: 2019Q1

REPORT INFORMATION
  Report Type: Spontaneous
  Country: JP (occurrence: JP)
  Receive Date: 20181226
  Receipt Date: 20190128
  Transmission Date: 20190417
  Serious: Yes (Death)
  Sender: FDA-Public Use
  Company Number: JP-PFIZER INC-2018530036

PATIENT
  Age: 77 Year
  Sex: Male

DRUGS (6)
  1. EFFEXOR [Suspect]
     Active Substance: VENLAFAXINE HYDROCHLORIDE
     Dosage: 75 MG, DAILY
  2. EFFEXOR [Suspect]
     Active Substance: VENLAFAXINE HYDROCHLORIDE
     Dosage: 75 MG, UNK
     Dates: start: 20181107
  3. REFLEX [Concomitant]
     Active Substance: MIRTAZAPINE
     Indication: INSOMNIA
     Dosage: 15 MG, 1X/DAY
     Route: 048
     Dates: start: 20181107, end: 20181125
  4. HANGEKOBOKUTO [MAGNOLIA SPP. BARK;PERILLA FRUTESCENS VAR. CRISPA HERB; [Concomitant]
     Indication: ANXIETY
     Dosage: 2.5 G, 3X/DAY
     Route: 048
     Dates: start: 20181107, end: 20181125
  5. EFFEXOR [Suspect]
     Active Substance: VENLAFAXINE HYDROCHLORIDE
     Indication: DEPRESSION
     Dosage: 37.5 MG, 1X/DAY
     Route: 048
     Dates: start: 20181031, end: 20181125
  6. REFLEX [Concomitant]
     Active Substance: MIRTAZAPINE
     Indication: ANXIETY

REACTIONS (3)
  - Irritability [Unknown]
  - Completed suicide [Fatal]
  - Fatigue [Unknown]

NARRATIVE: CASE EVENT DATE: 20181121
